FAERS Safety Report 8971311 (Version 2)
Quarter: 2013Q4

REPORT INFORMATION
  Report Type: Spontaneous
  Country: CA (occurrence: CA)
  Receive Date: 20121218
  Receipt Date: 20131122
  Transmission Date: 20140711
  Serious: Yes (Other)
  Sender: FDA-Public Use
  Company Number: CA-AMGEN-CANSP2012076459

PATIENT
  Age: 68 Year
  Sex: Female
  Weight: 86 kg

DRUGS (2)
  1. XGEVA [Suspect]
     Indication: BREAST CANCER METASTATIC
     Dosage: UNK UNK, QMO
     Route: 058
     Dates: start: 20120207
  2. FEMARA [Suspect]
     Indication: BREAST CANCER METASTATIC
     Dosage: 25 MUG, QD
     Route: 048
     Dates: start: 2011

REACTIONS (6)
  - Fall [Recovered/Resolved]
  - Clavicle fracture [Recovered/Resolved]
  - Radius fracture [Recovered/Resolved]
  - Ankle fracture [Recovered/Resolved]
  - Laceration [Recovered/Resolved]
  - Anxiety [Recovered/Resolved]
